FAERS Safety Report 13552060 (Version 1)
Quarter: 2017Q2

REPORT INFORMATION
  Report Type: Spontaneous
  Country: DK (occurrence: DK)
  Receive Date: 20170516
  Receipt Date: 20170516
  Transmission Date: 20170830
  Serious: Yes (Hospitalization)
  Sender: FDA-Public Use
  Company Number: DK-EXELIXIS-CABO-17009162

PATIENT
  Age: 68 Year
  Sex: Male

DRUGS (9)
  1. INNOHEP [Concomitant]
     Active Substance: TINZAPARIN SODIUM
  2. PANTOPRAZOL ACTAVIS [Concomitant]
     Active Substance: PANTOPRAZOLE SODIUM
  3. IBUMAX [Concomitant]
  4. LOCOID [Concomitant]
     Active Substance: HYDROCORTISONE BUTYRATE
  5. KODEIN ALTERNOVA [Concomitant]
  6. PREDNISOLON [Concomitant]
     Active Substance: PREDNISOLONE
  7. PAMOL [Concomitant]
     Active Substance: ACETAMINOPHEN
  8. CABOMETYX [Suspect]
     Active Substance: CABOZANTINIB S-MALATE
     Indication: RENAL CANCER METASTATIC
     Dosage: 60 MG, QD
     Route: 048
     Dates: start: 20170413
  9. DOMPERIDON [Concomitant]
     Active Substance: DOMPERIDONE

REACTIONS (4)
  - Dyspnoea [Recovering/Resolving]
  - Chest pain [Recovering/Resolving]
  - Pallor [Recovering/Resolving]
  - Pulmonary embolism [Recovering/Resolving]

NARRATIVE: CASE EVENT DATE: 201704
